FAERS Safety Report 6426944-7 (Version None)
Quarter: 2009Q4

REPORT INFORMATION
  Report Type: 
  Country: None (occurrence: None)
  Receive Date: 20091030
  Receipt Date: 20091015
  Transmission Date: 20100525
  Serious: Yes (Other)
  Sender: FDA-Public Use
  Company Number: A-NJ2009-27692

PATIENT
  Age: 86 Year
  Sex: Female

DRUGS (3)
  1. TRACLEER [Suspect]
     Indication: PULMONARY ARTERIAL HYPERTENSION
     Dosage: 62.5 MG, BID, ORAL
     Route: 048
     Dates: start: 20090914, end: 20091001
  2. COUMADIN [Concomitant]
  3. OXYMETAZOLINE (OXYMETAZOLINE) [Concomitant]

REACTIONS (3)
  - ANAPHYLACTIC REACTION [None]
  - DRY MOUTH [None]
  - HYPERSENSITIVITY [None]
